FAERS Safety Report 7204116-6 (Version None)
Quarter: 2010Q4

REPORT INFORMATION
  Report Type: 
  Country: None (occurrence: None)
  Receive Date: 20101230
  Receipt Date: 20101216
  Transmission Date: 20110411
  Serious: Yes (Hospitalization)
  Sender: FDA-Public Use
  Company Number: US-ROCHE-713709

PATIENT
  Sex: Male
  Weight: 55.3 kg

DRUGS (20)
  1. BEVACIZUMAB [Suspect]
     Indication: METASTATIC GASTRIC CANCER
     Dosage: STRENGTH OF 400 MG /16 ML.LAST DOSE PRIOR TO SAE:15 NOVEMBER 2010
     Route: 042
     Dates: start: 20100525
  2. FLUOROURACIL [Suspect]
     Indication: METASTATIC GASTRIC CANCER
     Dosage: FORM:INFUSION, BOLUS DOSE
     Route: 065
     Dates: start: 20100525
  3. FLUOROURACIL [Suspect]
     Dosage: CONTINUOUS INFUSION:4104 MG
     Route: 065
     Dates: end: 20100527
  4. FLUOROURACIL [Suspect]
     Dosage: DOSE REDUCED, CYCLE 2
     Route: 065
     Dates: start: 20100608
  5. LEUCOVORIN [Suspect]
     Indication: METASTATIC GASTRIC CANCER
     Dosage: DOSE AND FREQUENCY: NOT REPORTED
     Route: 065
  6. ELOXATIN [Suspect]
     Indication: METASTATIC GASTRIC CANCER
     Dosage: DOSE AND FREQUENCY: NOT REPORTED
     Route: 065
  7. FLUOROURACIL/FOLINIC ACID/IRINOTECAN/OXALIPLATIN [Concomitant]
     Dosage: LAST DOSE ADMINISTERED: 15 NOVEMBER 2010.
  8. NORVASC [Concomitant]
     Indication: HYPERTENSION
     Route: 048
  9. PREVACID [Concomitant]
     Dosage: DELAYED RELEASE CAPSULE
     Route: 048
  10. IRON [Concomitant]
     Route: 048
  11. AVONEX [Concomitant]
     Dosage: INJECTION GIVEN WEEKLY
  12. VITAMIN B-12 [Concomitant]
     Route: 058
  13. LEXAPRO [Concomitant]
     Route: 048
  14. MORPHINE [Concomitant]
     Route: 048
  15. NORVASC [Concomitant]
     Route: 048
  16. FENTANYL-100 [Concomitant]
  17. PERCOCET [Concomitant]
     Route: 048
  18. FOLIC ACID [Concomitant]
     Route: 048
  19. THIAMINE [Concomitant]
     Route: 048
  20. M.V.I. [Concomitant]
     Dosage: EVERY DAY
     Route: 048

REACTIONS (7)
  - CONFUSIONAL STATE [None]
  - DEHYDRATION [None]
  - DYSPNOEA [None]
  - HYPOXIA [None]
  - LUNG INFILTRATION [None]
  - PULMONARY EMBOLISM [None]
  - PYREXIA [None]
